FAERS Safety Report 9154299 (Version 1)
Quarter: 2013Q1

REPORT INFORMATION
  Report Type: Spontaneous
  Country: US (occurrence: US)
  Receive Date: 20130311
  Receipt Date: 20130311
  Transmission Date: 20140127
  Serious: Yes (Other)
  Sender: FDA-Public Use
  Company Number: US-PFIZER INC-2013079326

PATIENT
  Sex: Female
  Weight: 79 kg

DRUGS (7)
  1. NORVASC [Suspect]
     Indication: HYPERTENSION
     Dosage: 1X/DAY
     Route: 048
  2. NEURONTIN [Suspect]
     Indication: SYSTEMIC LUPUS ERYTHEMATOSUS
     Dosage: UNK
     Route: 048
     Dates: start: 2008
  3. NEURONTIN [Suspect]
     Indication: FIBROMYALGIA
     Dosage: 300 MG, (HALF TABLET)
  4. ZOLOFT [Suspect]
     Indication: SYSTEMIC LUPUS ERYTHEMATOSUS
     Dosage: UNK
     Route: 048
     Dates: start: 2011
  5. ZOLOFT [Suspect]
     Indication: FIBROMYALGIA
     Dosage: 25 MG, (HALF TABLET)
  6. ALDACTONE [Suspect]
     Indication: PROPHYLAXIS
     Dosage: 50 MG, 1X/DAY
     Route: 048
  7. IRON [Concomitant]
     Indication: ANAEMIA
     Dosage: 325 MG, 1X/DAY
     Route: 048

REACTIONS (2)
  - Myocardial infarction [Unknown]
  - Pneumonia [Unknown]
